FAERS Safety Report 6941468-6 (Version None)
Quarter: 2010Q3

REPORT INFORMATION
  Report Type: 
  Country: None (occurrence: None)
  Receive Date: 20100824
  Receipt Date: 20100824
  Transmission Date: 20110219
  Serious: Yes (Hospitalization)
  Sender: FDA-Public Use
  Company Number: None

PATIENT
  Sex: Male
  Weight: 59.3 kg

DRUGS (5)
  1. CYCLOPHOSPHAMIDE [Suspect]
     Dosage: 1760 MG
     Dates: end: 20100714
  2. CYTARABINE [Suspect]
     Dosage: 1040 MG
     Dates: end: 20100724
  3. MERCAPTOPURINE [Suspect]
     Dosage: 1400 MG
     Dates: end: 20100727
  4. METHOTREXATE [Suspect]
     Dosage: 45 MG
     Dates: end: 20100728
  5. VINCRISTINE SULFATE [Suspect]
     Dosage: 2 MG
     Dates: end: 20100728

REACTIONS (10)
  - ABDOMINAL PAIN [None]
  - BLOOD CULTURE POSITIVE [None]
  - BREATH SOUNDS ABNORMAL [None]
  - CANDIDIASIS [None]
  - DYSPNOEA [None]
  - HYPOTENSION [None]
  - POST PROCEDURAL COMPLICATION [None]
  - PYREXIA [None]
  - STAPHYLOCOCCAL INFECTION [None]
  - TACHYPNOEA [None]
